FAERS Safety Report 9026710 (Version 1)
Quarter: 2013Q1

REPORT INFORMATION
  Report Type: Spontaneous
  Country: US (occurrence: None)
  Receive Date: 20130114
  Receipt Date: 20130114
  Transmission Date: 20140127
  Serious: Yes (Other)
  Sender: FDA-Public Use
  Company Number: None

PATIENT
  Age: 65 Year
  Sex: Male
  Weight: 80.74 kg

DRUGS (4)
  1. AMLODIPINE BESYLATE [Suspect]
     Indication: HYPERTENSION
     Route: 048
     Dates: start: 2008, end: 2012
  2. LISINOPRIL [Concomitant]
  3. LORAZAPAM [Concomitant]
  4. ASPIRIN [Concomitant]

REACTIONS (3)
  - Paradoxical drug reaction [None]
  - Back pain [None]
  - Nausea [None]
